FAERS Safety Report 7644437-6 (Version None)
Quarter: 2011Q3

REPORT INFORMATION
  Report Type: 
  Country: None (occurrence: None)
  Receive Date: 20110729
  Receipt Date: 20110726
  Transmission Date: 20111222
  Serious: No
  Sender: FDA-Public Use
  Company Number: US-TEVA-293522USA

PATIENT
  Sex: Female
  Weight: 69.916 kg

DRUGS (3)
  1. BENADRYL [Concomitant]
     Indication: HYPERSENSITIVITY
  2. PLAN B ONE-STEP [Suspect]
     Dosage: 1.5 MILLIGRAM;
     Route: 048
     Dates: start: 20110630, end: 20110630
  3. PLAN B ONE-STEP [Suspect]
     Indication: POST COITAL CONTRACEPTION
     Dosage: 1.5 MILLIGRAM;
     Route: 048
     Dates: start: 20110610, end: 20110610

REACTIONS (2)
  - MENSTRUATION IRREGULAR [None]
  - PELVIC PAIN [None]
